FAERS Safety Report 19014566 (Version 1)
Quarter: 2021Q1

REPORT INFORMATION
  Report Type: Other
  Country: CA (occurrence: CA)
  Receive Date: 20210317
  Receipt Date: 20210317
  Transmission Date: 20210420
  Serious: Yes (Other)
  Sender: FDA-Public Use
  Company Number: CA-APOTEX-2021AP005560

PATIENT
  Age: 65 Year
  Sex: Male
  Weight: 74 kg

DRUGS (3)
  1. ERYTHROMYCIN. [Concomitant]
     Active Substance: ERYTHROMYCIN
     Indication: PRODUCT USED FOR UNKNOWN INDICATION
     Dosage: UNK
     Route: 065
  2. ROSUVASTATIN. [Concomitant]
     Active Substance: ROSUVASTATIN
     Indication: PRODUCT USED FOR UNKNOWN INDICATION
     Dosage: UNK
     Route: 065
  3. SALBUTAMOL HFA [Suspect]
     Active Substance: ALBUTEROL
     Indication: LOWER RESPIRATORY TRACT INFECTION
     Dosage: 100 MICROGRAM, BID

REACTIONS (4)
  - Hallucination [Recovered/Resolved]
  - Abnormal dreams [Recovered/Resolved]
  - Nightmare [Recovered/Resolved]
  - Insomnia [Recovered/Resolved]
